FAERS Safety Report 7765366-3 (Version None)
Quarter: 2011Q3

REPORT INFORMATION
  Report Type: 
  Country: None (occurrence: None)
  Receive Date: 20110916
  Receipt Date: 20110906
  Transmission Date: 20111222
  Serious: Yes (Death, Hospitalization)
  Sender: FDA-Public Use
  Company Number: TPA2011A05561

PATIENT
  Age: 80 Year
  Sex: Male

DRUGS (1)
  1. ULORIC [Suspect]
     Indication: GOUT

REACTIONS (4)
  - CARDIAC FAILURE CONGESTIVE [None]
  - LACTIC ACIDOSIS [None]
  - PULMONARY OEDEMA [None]
  - MYOCARDIAL INFARCTION [None]
